FAERS Safety Report 9970778 (Version 2)
Quarter: 2014Q1

REPORT INFORMATION
  Report Type: Report from Study
  Country: PR (occurrence: PR)
  Receive Date: 20140306
  Receipt Date: 20140306
  Transmission Date: 20141002
  Serious: No
  Sender: FDA-Public Use
  Company Number: PR-ABBVIE-12P-131-0918519-00

PATIENT
  Age: 38 Year
  Sex: Female
  Weight: 79.45 kg

DRUGS (9)
  1. HUMIRA [Suspect]
     Indication: PSORIATIC ARTHROPATHY
     Route: 058
     Dates: start: 2011, end: 201202
  2. HUMIRA [Suspect]
     Route: 058
     Dates: start: 20120330, end: 201306
  3. PEPCID [Concomitant]
     Indication: GASTRITIS
     Route: 048
  4. NEURONTIN [Concomitant]
     Indication: FIBROMYALGIA
     Dosage: 1 TAB AT NIGHT
     Route: 048
  5. PREDNISONE [Concomitant]
     Indication: FIBROMYALGIA
     Route: 048
  6. CYMBALTA [Concomitant]
     Indication: MAJOR DEPRESSION
     Route: 048
  7. ULTRACET [Concomitant]
     Indication: PAIN
     Route: 048
  8. FIORICET [Concomitant]
     Indication: MIGRAINE
     Route: 048
  9. PRILOSEC [Concomitant]
     Indication: GASTRITIS
     Route: 048

REACTIONS (1)
  - Tonsillitis [Recovered/Resolved]
